FAERS Safety Report 4641744-6 (Version None)
Quarter: 2005Q2

REPORT INFORMATION
  Report Type: 
  Country: None (occurrence: None)
  Receive Date: 20050420
  Receipt Date: 20050405
  Transmission Date: 20051028
  Serious: Yes (Death)
  Sender: FDA-Public Use
  Company Number: MK200504-0060-1

PATIENT
  Age: 65 Year
  Sex: Female
  Weight: 37.195 kg

DRUGS (4)
  1. ANAFRANIL [Suspect]
     Dosage: ANTIDEPRESSANT
  2. FLUVOXAMINE [Suspect]
  3. LITHIUM [Suspect]
  4. LEVOMEPROMAZINE [Suspect]

REACTIONS (8)
  - CARDIOMYOPATHY [None]
  - CONJUNCTIVAL HYPERAEMIA [None]
  - EXCORIATION [None]
  - HYPERTHERMIA [None]
  - NEUROLEPTIC MALIGNANT SYNDROME [None]
  - PETECHIAE [None]
  - SEROTONIN SYNDROME [None]
  - TRYPTASE INCREASED [None]
